FAERS Safety Report 6087129-X (Version None)
Quarter: 2009Q1

REPORT INFORMATION
  Report Type: 
  Country: None (occurrence: None)
  Receive Date: 20090211
  Receipt Date: 20090128
  Transmission Date: 20090719
  Serious: Yes (Other)
  Sender: FDA-Public Use
  Company Number: CHPA2009US01363

PATIENT
  Age: 86 Year
  Sex: Female
  Weight: 65.8 kg

DRUGS (2)
  1. BUFFERIN [Suspect]
     Indication: ARTHRITIS
     Dosage: 1000 MG, QID, ORAL
     Route: 048
  2. LISINOPRIL [Concomitant]

REACTIONS (4)
  - BLOOD PRESSURE INCREASED [None]
  - DECREASED ACTIVITY [None]
  - FEELING ABNORMAL [None]
  - INTENTIONAL DRUG MISUSE [None]
